FAERS Safety Report 4624817-3 (Version None)
Quarter: 2005Q2

REPORT INFORMATION
  Report Type: 
  Country: None (occurrence: None)
  Receive Date: 20050401
  Receipt Date: 20050322
  Transmission Date: 20051028
  Serious: Yes (Hospitalization)
  Sender: FDA-Public Use
  Company Number: US-JNJFOC-20050305725

PATIENT
  Sex: Female
  Weight: 73.94 kg

DRUGS (13)
  1. REMICADE [Suspect]
     Route: 042
  2. REMICADE [Suspect]
     Indication: RHEUMATOID ARTHRITIS
     Route: 042
  3. METHOTREXATE [Concomitant]
  4. PREDNISONE [Concomitant]
  5. ACTONEL [Concomitant]
  6. NEXIUM [Concomitant]
  7. ABILIFY [Concomitant]
     Dosage: AM
  8. LEXAPRO [Concomitant]
  9. ADDERALL XR 10 [Concomitant]
  10. ADDERALL XR 10 [Concomitant]
  11. ADDERALL XR 10 [Concomitant]
  12. ADDERALL XR 10 [Concomitant]
     Dosage: 3 TABS AM, 1 TAB PM
  13. VALDECOXIB [Concomitant]

REACTIONS (1)
  - FUNGAL INFECTION [None]
